FAERS Safety Report 10540972 (Version 2)
Quarter: 2014Q4

REPORT INFORMATION
  Report Type: Spontaneous
  Country: US (occurrence: None)
  Receive Date: 20141010
  Receipt Date: 20141205
  Transmission Date: 20150529
  Serious: Yes (Other)
  Sender: FDA-Public Use
  Company Number: 163-POMAL-14054462

PATIENT
  Age: 59 Year
  Sex: Male

DRUGS (5)
  1. DEXAMETHASONE (DEXAMETHASONE) (UNKNOWN) [Concomitant]
     Active Substance: DEXAMETHASONE
  2. COD LIVER OIL (COD-LIVER OIL) (CAPSULES) [Concomitant]
  3. ASA (ACETYLSALICYLIC ACID) (UNKNOWN) [Concomitant]
  4. POMALYST [Suspect]
     Active Substance: POMALIDOMIDE
     Indication: PLASMA CELL MYELOMA
     Dosage: 2 MG, 21 IN 28 D, PO?
     Route: 048
     Dates: start: 20140128
  5. ADVIL (IBUPROFEN) (CAPSULES) [Concomitant]

REACTIONS (5)
  - Headache [None]
  - Hot flush [None]
  - Sinus disorder [None]
  - Visual impairment [None]
  - Insomnia [None]

NARRATIVE: CASE EVENT DATE: 2014
